FAERS Safety Report 6094714-8 (Version None)
Quarter: 2009Q1

REPORT INFORMATION
  Report Type: 
  Country: None (occurrence: None)
  Receive Date: 20090226
  Receipt Date: 20090220
  Transmission Date: 20090719
  Serious: No
  Sender: FDA-Public Use
  Company Number: DK-AMGEN-UK313562

PATIENT
  Sex: Female
  Weight: 57.5 kg

DRUGS (8)
  1. MIMPARA [Suspect]
     Indication: HYPERPARATHYROIDISM SECONDARY
     Route: 048
     Dates: start: 20081003
  2. ARANESP [Concomitant]
     Route: 042
     Dates: start: 20060928
  3. SODIUM POLYSTYRENE SULFONATE [Concomitant]
  4. RENAGEL [Concomitant]
     Route: 048
     Dates: start: 20061030
  5. VITAMIN B COMPLEX CAP [Concomitant]
     Route: 048
     Dates: start: 20051117
  6. FOLIC ACID [Concomitant]
     Route: 048
  7. IRON [Concomitant]
     Route: 048
     Dates: start: 20060515
  8. INNOHEP [Concomitant]

REACTIONS (1)
  - BLEEDING TIME PROLONGED [None]
